FAERS Safety Report 4850508-X (Version None)
Quarter: 2005Q4

REPORT INFORMATION
  Report Type: 
  Country: None (occurrence: None)
  Receive Date: 20051207
  Receipt Date: 20051207
  Transmission Date: 20060501
  Serious: Yes (Hospitalization)
  Sender: FDA-Public Use
  Company Number: None

PATIENT
  Age: 54 Year
  Sex: Female
  Weight: 47 kg

DRUGS (10)
  1. TAXOTERE [Suspect]
     Indication: DISEASE RECURRENCE
     Dosage: 3.6 MG/M2/D IV
     Route: 042
     Dates: start: 20051108, end: 20051126
  2. TAXOTERE [Suspect]
     Indication: OVARIAN CANCER
     Dosage: 3.6 MG/M2/D IV
     Route: 042
     Dates: start: 20051108, end: 20051126
  3. ANZEMET [Concomitant]
  4. TYLENOL [Concomitant]
  5. SUDAFED 12 HOUR [Concomitant]
  6. SENNA [Concomitant]
  7. OXYCODONE HCL [Concomitant]
  8. MIRALAX [Concomitant]
  9. PRILOSEC [Concomitant]
  10. CLONIDINE [Concomitant]

REACTIONS (2)
  - ABDOMINAL PAIN [None]
  - BACK PAIN [None]
